FAERS Safety Report 20954096 (Version 1)
Quarter: 2022Q2

REPORT INFORMATION
  Report Type: Spontaneous
  Country: FR (occurrence: FR)
  Receive Date: 20220614
  Receipt Date: 20220614
  Transmission Date: 20220721
  Serious: Yes (Other)
  Sender: FDA-Public Use
  Company Number: None

PATIENT
  Age: 1 Day
  Sex: Female

DRUGS (3)
  1. QUETIAPINE [Suspect]
     Active Substance: QUETIAPINE
     Indication: Foetal exposure during pregnancy
     Dosage: (MATERNAL DOSE 250MG)
     Route: 064
     Dates: end: 20210531
  2. VENLAFAXINE [Suspect]
     Active Substance: VENLAFAXINE HYDROCHLORIDE
     Indication: Foetal exposure during pregnancy
     Dosage: (MATERNAL DOSE 187.5MG)
     Route: 064
     Dates: end: 20210531
  3. PRAZEPAM [Suspect]
     Active Substance: PRAZEPAM
     Indication: Foetal exposure during pregnancy
     Dosage: (MATERNAL DOSE 20 MG)
     Route: 064
     Dates: end: 20210531

REACTIONS (2)
  - Myoclonus [Recovered/Resolved]
  - Hypotonia [Not Recovered/Not Resolved]

NARRATIVE: CASE EVENT DATE: 20210531
